FAERS Safety Report 8064726-3 (Version None)
Quarter: 2012Q1

REPORT INFORMATION
  Report Type: 
  Country: None (occurrence: None)
  Receive Date: 20120123
  Receipt Date: 20120110
  Transmission Date: 20120608
  Serious: Yes (Hospitalization, Other)
  Sender: FDA-Public Use
  Company Number: US-ELI_LILLY_AND_COMPANY-US201201003373

PATIENT
  Sex: Female

DRUGS (2)
  1. ANALGESICS [Concomitant]
     Indication: PAIN
     Dosage: UNK, PRN
  2. FORTEO [Suspect]
     Indication: OSTEOPOROSIS
     Dosage: 20 UG, QD
     Route: 065
     Dates: start: 20111101

REACTIONS (3)
  - ARTHROPATHY [None]
  - BACK PAIN [None]
  - STRESS FRACTURE [None]
